FAERS Safety Report 7282912-7 (Version None)
Quarter: 2011Q1

REPORT INFORMATION
  Report Type: 
  Country: None (occurrence: None)
  Receive Date: 20110209
  Receipt Date: 20101220
  Transmission Date: 20110831
  Serious: Yes (Hospitalization)
  Sender: FDA-Public Use
  Company Number: US-BAYER-201023850NA

PATIENT
  Sex: Female

DRUGS (9)
  1. YASMIN [Suspect]
     Indication: PRODUCT USED FOR UNKNOWN INDICATION
     Route: 048
     Dates: start: 20060415, end: 20080513
  2. ALLEGRA [Concomitant]
  3. ULTRAM [Concomitant]
  4. IBUPROFEN [Concomitant]
  5. ADVAIR [Concomitant]
  6. SYNTHROID [Concomitant]
  7. LORTAB [Concomitant]
  8. UNCODEABLE ^UNCLASSIFIABLE^ [Concomitant]
  9. MAXZIDE [Concomitant]

REACTIONS (2)
  - THROMBOPHLEBITIS SUPERFICIAL [None]
  - DEEP VEIN THROMBOSIS [None]
